FAERS Safety Report 19618304 (Version 2)
Quarter: 2022Q1

REPORT INFORMATION
  Report Type: Spontaneous
  Country: PL (occurrence: PL)
  Receive Date: 20210728
  Receipt Date: 20220203
  Transmission Date: 20220423
  Serious: Yes (Hospitalization, Other)
  Sender: FDA-Public Use
  Company Number: PL-EMA-DD-20191216-KORTI_S1-153028

PATIENT
  Age: 37 Year
  Sex: Female

DRUGS (2)
  1. IBUPROFEN [Suspect]
     Active Substance: IBUPROFEN
     Indication: Product used for unknown indication
     Dosage: DOSE NOT REPORTED ()
     Route: 048
  2. ROSUVASTATIN [Suspect]
     Active Substance: ROSUVASTATIN
     Indication: Product used for unknown indication
     Dosage: UNK
     Route: 065

REACTIONS (9)
  - Jaundice [Unknown]
  - Oligohydramnios [Recovered/Resolved]
  - Anaemia [Unknown]
  - Laboratory test abnormal [Unknown]
  - Exposure during pregnancy [Recovered/Resolved]
  - Transaminases increased [Unknown]
  - Body mass index decreased [Unknown]
  - Fatigue [Unknown]
  - Total bile acids increased [Unknown]
